FAERS Safety Report 6840429-5 (Version None)
Quarter: 2010Q3

REPORT INFORMATION
  Report Type: 
  Country: None (occurrence: None)
  Receive Date: 20100714
  Receipt Date: 20100709
  Transmission Date: 20110219
  Serious: Yes (Other)
  Sender: FDA-Public Use
  Company Number: JP-BRISTOL-MYERS SQUIBB COMPANY-15188345

PATIENT
  Age: 48 Year
  Sex: Female

DRUGS (2)
  1. PACLITAXEL [Suspect]
     Indication: OVARIAN CANCER
     Route: 041
  2. CARBOPLATIN [Suspect]
     Indication: OVARIAN CANCER
     Route: 041

REACTIONS (2)
  - ACUTE MYELOID LEUKAEMIA [None]
  - PANCYTOPENIA [None]
